FAERS Safety Report 4854560-7 (Version None)
Quarter: 2005Q4

REPORT INFORMATION
  Report Type: 
  Country: None (occurrence: None)
  Receive Date: 20051215
  Receipt Date: 19990915
  Transmission Date: 20060501
  Serious: Yes (Hospitalization)
  Sender: FDA-Public Use
  Company Number: FR-ROCHE-215772

PATIENT
  Age: 68 Year
  Sex: Male
  Weight: 96 kg

DRUGS (7)
  1. XENICAL [Suspect]
     Indication: OBESITY
     Route: 048
     Dates: start: 19990901, end: 19990908
  2. XENICAL [Suspect]
     Route: 048
     Dates: start: 19990715
  3. BEFIZAL [Suspect]
     Route: 048
     Dates: start: 19940101, end: 19990901
  4. ZESTRIL [Suspect]
     Route: 048
     Dates: start: 19950615, end: 19990915
  5. LEVOTHYROXINE SODIUM [Concomitant]
     Indication: HYPOTHYROIDISM
     Dosage: TREATMENT WAS STOPPED FROM 15 SEPTEMBER TO APPROX. 26 SEPTEMBER AND THEN RESTARTED.
     Route: 048
     Dates: start: 19970115
  6. ALLOPURINOL [Suspect]
     Route: 048
     Dates: start: 19950101, end: 19990913
  7. ENALAPRIL MALEATE [Concomitant]
     Route: 048
     Dates: start: 19950101

REACTIONS (23)
  - ALANINE AMINOTRANSFERASE INCREASED [None]
  - ASPARTATE AMINOTRANSFERASE INCREASED [None]
  - ASTHENIA [None]
  - BLOOD ALKALINE PHOSPHATASE INCREASED [None]
  - BLOOD BILIRUBIN INCREASED [None]
  - CHOLELITHIASIS [None]
  - CIRCULATORY COLLAPSE [None]
  - CYTOLYTIC HEPATITIS [None]
  - DEHYDRATION [None]
  - ESCHERICHIA BACTERAEMIA [None]
  - ESCHERICHIA SEPSIS [None]
  - ESCHERICHIA URINARY TRACT INFECTION [None]
  - GAMMA-GLUTAMYLTRANSFERASE INCREASED [None]
  - GASTRIC ULCER HAEMORRHAGE [None]
  - HAEMOGLOBIN DECREASED [None]
  - HEPATIC STEATOSIS [None]
  - HEPATITIS CHOLESTATIC [None]
  - HEPATOMEGALY [None]
  - HYPOTENSION [None]
  - JAUNDICE [None]
  - LEUKOCYTOSIS [None]
  - RENAL FAILURE [None]
  - WEIGHT DECREASED [None]
